FAERS Safety Report 12318617 (Version 1)
Quarter: 2016Q2

REPORT INFORMATION
  Report Type: Spontaneous
  Country: ES (occurrence: ES)
  Receive Date: 20160429
  Receipt Date: 20160429
  Transmission Date: 20160815
  Serious: Yes (Other)
  Sender: FDA-Public Use
  Company Number: ES-JNJFOC-20160426528

PATIENT
  Age: 87 Year
  Sex: Female

DRUGS (2)
  1. TRIFLUSAL [Suspect]
     Active Substance: TRIFLUSAL
     Indication: ATRIAL FIBRILLATION
     Route: 048
     Dates: start: 20090717, end: 20160303
  2. ZALDIAR [Suspect]
     Active Substance: ACETAMINOPHEN\TRAMADOL HYDROCHLORIDE
     Indication: ARTHRALGIA
     Route: 048
     Dates: start: 20060912, end: 201602

REACTIONS (1)
  - Iron deficiency anaemia [Recovering/Resolving]

NARRATIVE: CASE EVENT DATE: 2016
